FAERS Safety Report 9785644 (Version 1)
Quarter: 2013Q4

REPORT INFORMATION
  Report Type: Spontaneous
  Country: US (occurrence: None)
  Receive Date: 20131226
  Receipt Date: 20131226
  Transmission Date: 20140711
  Serious: Yes (Disabling)
  Sender: FDA-Public Use
  Company Number: None

PATIENT
  Age: 66 Year
  Sex: Male
  Weight: 74.84 kg

DRUGS (5)
  1. ALBUTEROL SULFATE INHALATION SOLUTION 0.083% [Suspect]
     Indication: DYSPNOEA
     Dosage: NEBLIZER 0.083%  1 VIAL 3 X DAY  NEBZLIER MIST.
     Dates: start: 2003
  2. SPRIVA [Concomitant]
  3. ADVAIR [Concomitant]
  4. BLOOD PRESSURE MED [Concomitant]
  5. MENS DAILY VITIMANS [Concomitant]

REACTIONS (5)
  - Hyperhidrosis [None]
  - Eye pain [None]
  - Sinus disorder [None]
  - Heart rate increased [None]
  - Dyspnoea exertional [None]
